FAERS Safety Report 11126150 (Version 1)
Quarter: 2015Q2

REPORT INFORMATION
  Report Type: Spontaneous
  Country: IT (occurrence: IT)
  Receive Date: 20150520
  Receipt Date: 20150520
  Transmission Date: 20150821
  Serious: Yes (Other)
  Sender: FDA-Public Use
  Company Number: IT-HOSPIRA-2863811

PATIENT
  Age: 5 Year
  Sex: Female

DRUGS (6)
  1. ONDANSETRON [Concomitant]
     Active Substance: ONDANSETRON
     Indication: ACUTE LEUKAEMIA
     Dates: start: 20150424
  2. CYTARABINE. [Suspect]
     Active Substance: CYTARABINE
     Indication: ACUTE LEUKAEMIA
     Dosage: DAILY
     Route: 042
     Dates: start: 20150424, end: 20150426
  3. VEPESID [Concomitant]
     Active Substance: ETOPOSIDE
     Indication: ACUTE LEUKAEMIA
     Route: 042
     Dates: start: 20150425, end: 20150428
  4. NORMIX [Concomitant]
     Active Substance: RIFAXIMIN
     Indication: ACUTE LEUKAEMIA
     Dates: start: 20150424
  5. TOBRADEX [Concomitant]
     Active Substance: DEXAMETHASONE\TOBRAMYCIN
     Indication: ACUTE LEUKAEMIA
     Dosage: MOUTH (TOPICAL USE)
     Route: 050
     Dates: start: 20150424
  6. POSACONAZOLE [Concomitant]
     Active Substance: POSACONAZOLE
     Indication: ACUTE LEUKAEMIA
     Dosage: MOUTH (TOPICAL USE)
     Route: 050

REACTIONS (2)
  - Skin reaction [Unknown]
  - Pyrexia [Unknown]

NARRATIVE: CASE EVENT DATE: 20150425
